FAERS Safety Report 21669640 (Version 3)
Quarter: 2023Q1

REPORT INFORMATION
  Report Type: Report from Study
  Country: TW (occurrence: TW)
  Receive Date: 20221201
  Receipt Date: 20230314
  Transmission Date: 20230418
  Serious: No
  Sender: FDA-Public Use
  Company Number: TW-002147023-NVSC2022TW277599

PATIENT
  Age: 3 Year
  Sex: Male
  Weight: 8 kg

DRUGS (2)
  1. TRAMETINIB [Suspect]
     Active Substance: TRAMETINIB
     Indication: Brain neoplasm
     Dosage: UNK
     Route: 065
  2. TRAMETINIB [Suspect]
     Active Substance: TRAMETINIB
     Dosage: UNK (0.032 MG/KG/D)
     Route: 048
     Dates: start: 20220726

REACTIONS (3)
  - Skin exfoliation [Recovering/Resolving]
  - Lip erythema [Recovering/Resolving]
  - Erythema [Recovering/Resolving]

NARRATIVE: CASE EVENT DATE: 20220718
